FAERS Safety Report 5067015-4 (Version None)
Quarter: 2006Q3

REPORT INFORMATION
  Report Type: 
  Country: None (occurrence: None)
  Receive Date: 20060726
  Receipt Date: 20060718
  Transmission Date: 20061208
  Serious: Yes (Death, Other)
  Sender: FDA-Public Use
  Company Number: 2006088632

PATIENT
  Age: 45 Year
  Sex: Female

DRUGS (1)
  1. NEURONTIN [Suspect]
     Indication: PAIN
     Dates: end: 20030623

REACTIONS (2)
  - ANXIETY [None]
  - COMPLETED SUICIDE [None]
